FAERS Safety Report 6684859-3 (Version None)
Quarter: 2010Q2

REPORT INFORMATION
  Report Type: 
  Country: None (occurrence: None)
  Receive Date: 20100416
  Receipt Date: 20100407
  Transmission Date: 20101027
  Serious: Yes (Hospitalization, Other)
  Sender: FDA-Public Use
  Company Number: US-MERCK-1003USA01534

PATIENT
  Age: 63 Year
  Sex: Male
  Weight: 85 kg

DRUGS (11)
  1. JANUVIA [Suspect]
     Indication: TYPE 2 DIABETES MELLITUS
     Route: 048
     Dates: start: 20090220
  2. LOVENOX [Concomitant]
     Route: 065
  3. ASPIRIN [Concomitant]
     Route: 065
  4. METFORMIN [Concomitant]
     Route: 065
  5. AVANDAMET [Concomitant]
     Route: 065
  6. ATENOLOL [Concomitant]
     Route: 065
  7. TESTOSTERONE [Concomitant]
     Route: 030
  8. LOPRESSOR [Concomitant]
     Route: 065
  9. MAGNESIUM (UNSPECIFIED) [Concomitant]
     Route: 065
  10. LOSARTAN POTASSIUM [Concomitant]
     Route: 065
  11. TYLENOL-500 [Concomitant]
     Route: 065

REACTIONS (9)
  - ACUTE MYOCARDIAL INFARCTION [None]
  - ATRIAL FIBRILLATION [None]
  - ATRIOVENTRICULAR BLOCK COMPLETE [None]
  - BRADYCARDIA [None]
  - CARDIAC DISORDER [None]
  - CORONARY ARTERY DISEASE [None]
  - DIABETES MELLITUS INADEQUATE CONTROL [None]
  - HYPERLIPIDAEMIA [None]
  - PANCREATITIS ACUTE [None]
